FAERS Safety Report 23231936 (Version 1)
Quarter: 2023Q4

REPORT INFORMATION
  Report Type: Spontaneous
  Country: DE (occurrence: None)
  Receive Date: 20231127
  Receipt Date: 20231127
  Transmission Date: 20240110
  Serious: Yes (Other)
  Sender: FDA-Public Use
  Company Number: 2023A265699

PATIENT
  Age: 64 Year
  Sex: Male

DRUGS (1)
  1. CALQUENCE [Suspect]
     Active Substance: ACALABRUTINIB
     Indication: Chronic lymphocytic leukaemia
     Route: 048
     Dates: start: 202202, end: 202209

REACTIONS (2)
  - Pleural effusion [Unknown]
  - Atelectasis [Unknown]

NARRATIVE: CASE EVENT DATE: 20220601
